FAERS Safety Report 19078743 (Version 1)
Quarter: 2021Q1

REPORT INFORMATION
  Report Type: Other
  Country: AU (occurrence: AU)
  Receive Date: 20210331
  Receipt Date: 20210331
  Transmission Date: 20210420
  Serious: Yes (Hospitalization)
  Sender: FDA-Public Use
  Company Number: AU-VALIDUS PHARMACEUTICALS LLC-AU-2021VAL000782

PATIENT
  Age: 80 Year
  Sex: Female

DRUGS (5)
  1. LASIX [Suspect]
     Active Substance: FUROSEMIDE
     Dosage: 80 MG, UNK
  2. LASIX [Suspect]
     Active Substance: FUROSEMIDE
     Dosage: 20 MG UNK
  3. LASIX [Suspect]
     Active Substance: FUROSEMIDE
     Indication: PRODUCT USED FOR UNKNOWN INDICATION
     Dosage: 80 MG, UNK
  4. ENTRESTO [Suspect]
     Active Substance: SACUBITRIL\VALSARTAN
     Dosage: 50 MG, UNK; UNKNOWN
  5. ENTRESTO [Suspect]
     Active Substance: SACUBITRIL\VALSARTAN
     Indication: PRODUCT USED FOR UNKNOWN INDICATION
     Dosage: 100 MG, UNK; UNKNOWN

REACTIONS (2)
  - Cardiac disorder [Not Recovered/Not Resolved]
  - Dehydration [Recovered/Resolved]
